FAERS Safety Report 8920027 (Version 1)
Quarter: 2012Q4

REPORT INFORMATION
  Report Type: 
  Country: US (occurrence: US)
  Receive Date: 20121121
  Receipt Date: 20121121
  Transmission Date: 20130627
  Serious: No
  Sender: FDA-Public Use
  Company Number: US-BRISTOL-MYERS SQUIBB COMPANY-16305534

PATIENT
  Age: 68 Year
  Sex: Male
  Weight: 92 kg

DRUGS (16)
  1. AVALIDE TABS 150MG/12.5MG [Suspect]
     Indication: HYPERTENSION
     Dosage: Dose increased:300mg:04Dec11,prescription:1014891 NDC: 1147923.interrupted 12Dec11 and restarted
  2. COREG [Concomitant]
     Dosage: 1 DF= 3.125UNS
  3. LOPRESSOR [Concomitant]
  4. MONTELUKAST [Concomitant]
  5. METFORMIN [Concomitant]
  6. FLOMAX [Concomitant]
     Dosage: 1Df=0.4(Units not specified).
  7. RANITIDINE [Concomitant]
  8. ZYRTEC [Concomitant]
  9. ZETIA [Concomitant]
  10. SOMA [Concomitant]
     Dosage: As needed-occastional use takes 7-10 dadys then none fro 3mnths
  11. FLEXERIL [Concomitant]
     Dosage: PRN
  12. TRAMADOL [Concomitant]
     Dosage: 50Mg 1/2 pill PRN.
  13. PERCODAN [Concomitant]
  14. FISH OIL [Concomitant]
  15. COQ10 [Concomitant]
     Dosage: CoQ10 mature
  16. MULTIVITAMIN [Concomitant]

REACTIONS (1)
  - Blood pressure increased [Recovered/Resolved]
